FAERS Safety Report 7019120-0 (Version None)
Quarter: 2010Q3

REPORT INFORMATION
  Report Type: 
  Country: None (occurrence: None)
  Receive Date: 20100928
  Receipt Date: 20100923
  Transmission Date: 20110219
  Serious: Yes (Other)
  Sender: FDA-Public Use
  Company Number: B0666262A

PATIENT
  Sex: Female

DRUGS (2)
  1. DARAPRIM [Suspect]
     Indication: GASTROINTESTINAL DISORDER
     Dosage: 25MG FOUR TIMES PER DAY
     Route: 048
     Dates: start: 20080718, end: 20080728
  2. FYBOGEL SACHETS [Concomitant]
     Indication: GASTROINTESTINAL DISORDER
     Route: 048
     Dates: start: 20080701, end: 20090901

REACTIONS (10)
  - ACCIDENTAL OVERDOSE [None]
  - ASTHENIA [None]
  - BLOOD TEST ABNORMAL [None]
  - DRUG PRESCRIBING ERROR [None]
  - MALAISE [None]
  - MOUTH ULCERATION [None]
  - ORAL PAIN [None]
  - PANCYTOPENIA [None]
  - PANIC ATTACK [None]
  - TREMOR [None]
